FAERS Safety Report 7177266-0 (Version None)
Quarter: 2010Q4

REPORT INFORMATION
  Report Type: 
  Country: None (occurrence: None)
  Receive Date: 20101220
  Receipt Date: 20101213
  Transmission Date: 20110411
  Serious: Yes (Other)
  Sender: FDA-Public Use
  Company Number: LB-ROCHE-748252

PATIENT
  Age: 70 Year
  Sex: Male

DRUGS (1)
  1. DACLIZUMAB [Suspect]
     Dosage: 2 VIALS OF DACLIZUMAB
     Route: 065

REACTIONS (1)
  - ANAPHYLACTIC SHOCK [None]
